FAERS Safety Report 9767304 (Version 2)
Quarter: 2013Q4

REPORT INFORMATION
  Report Type: Spontaneous
  Country: HU (occurrence: HU)
  Receive Date: 20131217
  Receipt Date: 20131217
  Transmission Date: 20140711
  Serious: Yes (Other)
  Sender: FDA-Public Use
  Company Number: HU-ELI_LILLY_AND_COMPANY-HU201311006945

PATIENT
  Sex: 0

DRUGS (4)
  1. ZYPADHERA [Suspect]
     Indication: SCHIZOPHRENIA
     Dosage: 300 MG, 2/M
     Route: 064
     Dates: start: 2010, end: 201301
  2. ZYPADHERA [Suspect]
     Dosage: 210 MG, 2/M
     Route: 064
     Dates: start: 201301, end: 20130530
  3. OLANSEK [Suspect]
     Indication: SCHIZOPHRENIA
     Dosage: 15 MG, QD
     Route: 064
     Dates: start: 20130531, end: 20131007
  4. OLANSEK [Suspect]
     Dosage: 2 MG, UNK
     Route: 065
     Dates: start: 2013

REACTIONS (3)
  - Pulmonary oedema neonatal [Recovered/Resolved]
  - Immature respiratory system [Recovered/Resolved]
  - Foetal exposure during pregnancy [Recovered/Resolved]
